FAERS Safety Report 7296841-6 (Version None)
Quarter: 2011Q1

REPORT INFORMATION
  Report Type: 
  Country: None (occurrence: None)
  Receive Date: 20110216
  Receipt Date: 20110207
  Transmission Date: 20110831
  Serious: Yes (Other)
  Sender: FDA-Public Use
  Company Number: US-ASTRAZENECA-2010SE02583

PATIENT
  Age: 459 Month
  Sex: Female

DRUGS (1)
  1. SEROQUEL XR [Suspect]
     Route: 048

REACTIONS (8)
  - HEADACHE [None]
  - AFFECT LABILITY [None]
  - INSOMNIA [None]
  - MALAISE [None]
  - INFLUENZA LIKE ILLNESS [None]
  - DRUG DOSE OMISSION [None]
  - TRANSIENT ISCHAEMIC ATTACK [None]
  - VOMITING [None]
